FAERS Safety Report 4730712-1 (Version None)
Quarter: 2005Q3

REPORT INFORMATION
  Report Type: 
  Country: None (occurrence: None)
  Receive Date: 20050725
  Receipt Date: 20050222
  Transmission Date: 20060218
  Serious: No
  Sender: FDA-Public Use
  Company Number: USA050291564

PATIENT
  Age: 11 Year
  Sex: Male
  Weight: 45 kg

DRUGS (1)
  1. STRATTERA [Suspect]
     Dosage: 20 MG/1 DAY
     Dates: end: 20041201

REACTIONS (3)
  - DIARRHOEA [None]
  - EYE MOVEMENT DISORDER [None]
  - TIC [None]
